FAERS Safety Report 8430828-2 (Version None)
Quarter: 2012Q2

REPORT INFORMATION
  Report Type: 
  Country: None (occurrence: None)
  Receive Date: 20120612
  Receipt Date: 20120605
  Transmission Date: 20120825
  Serious: Yes (Other)
  Sender: FDA-Public Use
  Company Number: CA-JNJFOC-20120602982

PATIENT
  Sex: Female

DRUGS (3)
  1. NAPROXEN (ALEVE) [Concomitant]
  2. ACETAMINOPHEN [Concomitant]
     Indication: ARTHRITIS
  3. SIMPONI [Suspect]
     Indication: RHEUMATOID ARTHRITIS
     Route: 058
     Dates: start: 20110401

REACTIONS (4)
  - PSORIASIS [None]
  - JOINT SWELLING [None]
  - ARTHRALGIA [None]
  - MUSCULOSKELETAL STIFFNESS [None]
